FAERS Safety Report 16076564 (Version 1)
Quarter: 2019Q1

REPORT INFORMATION
  Report Type: Spontaneous
  Country: US (occurrence: US)
  Receive Date: 20190315
  Receipt Date: 20190315
  Transmission Date: 20190418
  Serious: No
  Sender: FDA-Public Use
  Company Number: US-TEVA-2019-US-1019384

PATIENT
  Sex: Male

DRUGS (1)
  1. BUPRENORPHINE. [Suspect]
     Active Substance: BUPRENORPHINE
     Indication: DRUG DEPENDENCE
     Dosage: DOSE STRENGTH:  2
     Route: 065
     Dates: start: 20190122

REACTIONS (2)
  - Rash macular [Unknown]
  - Alopecia [Unknown]

NARRATIVE: CASE EVENT DATE: 20190126
